FAERS Safety Report 10199630 (Version 1)
Quarter: 2014Q2

REPORT INFORMATION
  Report Type: Spontaneous
  Country: FR (occurrence: FR)
  Receive Date: 20140527
  Receipt Date: 20140527
  Transmission Date: 20141212
  Serious: Yes (Disabling)
  Sender: FDA-Public Use
  Company Number: FR-DSJP-DSE-2014-109207

PATIENT
  Sex: 0

DRUGS (1)
  1. ALTEIS 20 MG [Suspect]
     Indication: PRODUCT USED FOR UNKNOWN INDICATION
     Dosage: 20 MG, QD
     Dates: start: 20110428

REACTIONS (1)
  - Colitis ulcerative [Not Recovered/Not Resolved]
